FAERS Safety Report 4392520-3 (Version None)
Quarter: 2004Q3

REPORT INFORMATION
  Report Type: 
  Country: None (occurrence: None)
  Receive Date: 20040702
  Receipt Date: 20040622
  Transmission Date: 20050211
  Serious: Yes (Hospitalization)
  Sender: FDA-Public Use
  Company Number: 2004-117749-NL

PATIENT
  Age: 49 Year
  Sex: Female

DRUGS (13)
  1. VECURONIUM BROMIDE [Suspect]
     Indication: MUSCLE RELAXANT THERAPY
     Dosage: 6 MG Q1HR
     Route: 041
  2. SUCCINYLCHOLINE CHLORIDE [Suspect]
     Indication: MUSCLE RELAXANT THERAPY
     Dosage: INTRAVENOUS (NOS)
     Route: 042
  3. HYDROCORTISONE [Suspect]
     Dosage: 400 MG INTRAVENOUS (NOS)
     Route: 042
  4. MORPHINE [Suspect]
     Dosage: DF  INTRAVENOUS (NOS)
     Route: 036
  5. ETOMIDATE [Concomitant]
  6. PROPOFOL [Concomitant]
  7. MIDAZOLAM HCL [Concomitant]
  8. CEFUROXIME [Concomitant]
  9. ENOXAPARIN SODIUM [Concomitant]
  10. RANITIDINE [Concomitant]
  11. ADRENALIN IN OIL INJ [Concomitant]
  12. ALBUTEROL SULFATE [Concomitant]
  13. IPRATROPIUM BROMIDE [Concomitant]

REACTIONS (6)
  - BLOOD PH DECREASED [None]
  - HAEMODIALYSIS [None]
  - PCO2 DECREASED [None]
  - PO2 DECREASED [None]
  - RENAL FAILURE [None]
  - RHABDOMYOLYSIS [None]
